FAERS Safety Report 5643740-9 (Version None)
Quarter: 2008Q1

REPORT INFORMATION
  Report Type: 
  Country: None (occurrence: None)
  Receive Date: 20080226
  Receipt Date: 20080215
  Transmission Date: 20080703
  Serious: Yes (Hospitalization, Other)
  Sender: FDA-Public Use
  Company Number: 45298

PATIENT
  Age: 47 Year
  Sex: Female

DRUGS (1)
  1. CLINDAMYCIN PHOSPHATE [Suspect]
     Indication: TOOTH INFECTION
     Dosage: 900 MG/Q 8HRS/IV
     Route: 042

REACTIONS (12)
  - ACUTE FEBRILE NEUTROPHILIC DERMATOSIS [None]
  - BLOOD CREATININE INCREASED [None]
  - CONJUNCTIVAL OEDEMA [None]
  - CONJUNCTIVITIS [None]
  - DROOLING [None]
  - DYSPHAGIA [None]
  - EYELID OEDEMA [None]
  - ODYNOPHAGIA [None]
  - PAIN [None]
  - SWELLING FACE [None]
  - TONGUE ULCERATION [None]
  - TOOTH ABSCESS [None]
